FAERS Safety Report 10220784 (Version 1)
Quarter: 2014Q2

REPORT INFORMATION
  Report Type: Spontaneous
  Country: IT (occurrence: None)
  Receive Date: 20140604
  Receipt Date: 20140604
  Transmission Date: 20141212
  Serious: Yes (Hospitalization)
  Sender: FDA-Public Use
  Company Number: 2014AP003189

PATIENT
  Age: 89 Year
  Sex: Female

DRUGS (10)
  1. PAROXETINE (PAROXETINE) UNKNOWN [Suspect]
     Indication: PRODUCT USED FOR UNKNOWN INDICATION
     Route: 048
     Dates: start: 20140101, end: 20140408
  2. TALOFEN [Suspect]
     Indication: PSYCHOMOTOR HYPERACTIVITY
     Dates: start: 20140406, end: 20140408
  3. HALCION (TRAIZOLAM) [Concomitant]
  4. MATRIFEN (FENTANYL) [Concomitant]
  5. PALEXIA (TAPENTADOL HYDROCHLORIDE) [Concomitant]
  6. CRESTOR (ROSUVASTATIN CALCIUM) [Concomitant]
  7. GLIBOMET (GLIBENCLAMIDE, METORMIN HYDROCHLORIDE) [Concomitant]
  8. LASIX (FUROSEMIDE) [Concomitant]
  9. APPROVEL (IRBESARTAN) [Concomitant]
  10. TIKLID (TICLOPIDINE HYDROCHLORIDE) [Concomitant]

REACTIONS (5)
  - Eye movement disorder [None]
  - Muscle contractions involuntary [None]
  - Trismus [None]
  - Drug interaction [None]
  - Loss of consciousness [None]
